FAERS Safety Report 23397093 (Version 1)
Quarter: 2024Q1

REPORT INFORMATION
  Report Type: Spontaneous
  Country: CN (occurrence: CN)
  Receive Date: 20240112
  Receipt Date: 20240112
  Transmission Date: 20240409
  Serious: Yes (Life-Threatening)
  Sender: FDA-Public Use
  Company Number: CN-BAYER-2024A005778

PATIENT
  Age: 64 Year
  Sex: Female
  Weight: 51.4 kg

DRUGS (1)
  1. AVELOX [Suspect]
     Active Substance: MOXIFLOXACIN HYDROCHLORIDE
     Indication: Pneumonia
     Dosage: 0.4 G, QD
     Route: 041
     Dates: start: 20240102, end: 20240102

REACTIONS (4)
  - Ventricular tachycardia [Recovered/Resolved]
  - Blood pressure diastolic decreased [None]
  - Oedema peripheral [None]
  - Heart rate decreased [None]

NARRATIVE: CASE EVENT DATE: 20240102
